FAERS Safety Report 6195231-7 (Version None)
Quarter: 2009Q2

REPORT INFORMATION
  Report Type: 
  Country: None (occurrence: None)
  Receive Date: 20090519
  Receipt Date: 20090504
  Transmission Date: 20091009
  Serious: Yes (Death, Other)
  Sender: FDA-Public Use
  Company Number: US-GENENTECH-283025

PATIENT

DRUGS (5)
  1. RITUXIMAB [Suspect]
     Indication: LYMPHOPROLIFERATIVE DISORDER
     Dosage: 375 MG/M2, Q4W
     Route: 065
  2. FLUDARABINE PHOSPHATE [Suspect]
     Indication: LYMPHOPROLIFERATIVE DISORDER
     Dosage: 25 MG/M2, UNK
     Route: 042
  3. FLAVOPIRIDOL [Suspect]
     Indication: LYMPHOPROLIFERATIVE DISORDER
     Route: 042
  4. BACTRIM [Concomitant]
     Indication: DRUG USE FOR UNKNOWN INDICATION
  5. VALTREX [Concomitant]
     Indication: DRUG USE FOR UNKNOWN INDICATION

REACTIONS (5)
  - CONFUSIONAL STATE [None]
  - CONVULSION [None]
  - DEATH [None]
  - DISEASE PROGRESSION [None]
  - RENAL FAILURE ACUTE [None]
